FAERS Safety Report 11154818 (Version 2)
Quarter: 2015Q3

REPORT INFORMATION
  Report Type: Report from Study
  Country: US (occurrence: US)
  Receive Date: 20150602
  Receipt Date: 20150929
  Transmission Date: 20151125
  Serious: Yes (Death, Hospitalization)
  Sender: FDA-Public Use
  Company Number: US-ROCHE-1585309

PATIENT
  Age: 75 Year
  Sex: Female
  Weight: 71.65 kg

DRUGS (3)
  1. CARBOPLATIN. [Suspect]
     Active Substance: CARBOPLATIN
     Indication: OVARIAN EPITHELIAL CANCER
     Dosage: LAST ADMINISTERED DATE: 23/APR/2008
     Route: 042
     Dates: start: 20080102, end: 20080423
  2. TAXOL [Suspect]
     Active Substance: PACLITAXEL
     Indication: OVARIAN EPITHELIAL CANCER
     Dosage: LAST ADMINISTERED DATE: 23/APR/2008
     Route: 042
     Dates: start: 20080102, end: 20080423
  3. BEVACIZUMAB [Suspect]
     Active Substance: BEVACIZUMAB
     Indication: OVARIAN EPITHELIAL CANCER
     Dosage: CYCLE = 21 DAYS, TOTAL NUMBER OF COURSES: 22, LAST DOSE ADMINISTERED DATE: 23/JUN/2009
     Route: 042
     Dates: start: 20080102, end: 20090623

REACTIONS (1)
  - Myelodysplastic syndrome [Fatal]

NARRATIVE: CASE EVENT DATE: 20150129
